FAERS Safety Report 6181949-9 (Version None)
Quarter: 2009Q2

REPORT INFORMATION
  Report Type: 
  Country: None (occurrence: None)
  Receive Date: 20090505
  Receipt Date: 20090427
  Transmission Date: 20091009
  Serious: Yes (Other)
  Sender: FDA-Public Use
  Company Number: 2009SP009041

PATIENT
  Age: 4 Year
  Sex: Male

DRUGS (2)
  1. COPPERTONE WATER BABIES LOTION, SPF 50 [Suspect]
     Indication: DRUG USE FOR UNKNOWN INDICATION
     Dosage: TOP ; TOP
     Route: 061
     Dates: start: 20090426, end: 20090426
  2. COPPERTONE WATER BABIES LOTION, SPF 50 [Suspect]
     Indication: DRUG USE FOR UNKNOWN INDICATION
     Dosage: TOP ; TOP
     Route: 061
     Dates: start: 20090426, end: 20090426

REACTIONS (2)
  - ANAPHYLACTIC SHOCK [None]
  - DYSPHAGIA [None]
